FAERS Safety Report 7398990-0 (Version None)
Quarter: 2011Q2

REPORT INFORMATION
  Report Type: 
  Country: None (occurrence: None)
  Receive Date: 20110407
  Receipt Date: 20110329
  Transmission Date: 20111010
  Serious: Yes (Hospitalization, Disabling, Other)
  Sender: FDA-Public Use
  Company Number: US-ELI_LILLY_AND_COMPANY-US201104000253

PATIENT
  Sex: Female

DRUGS (4)
  1. HUMULIN 70/30 [Suspect]
     Dosage: 12 U, EACH MORNING
  2. HUMULIN 70/30 [Suspect]
     Dosage: 7 U, EACH EVENING
     Dates: start: 19970101
  3. HUMULIN 70/30 [Suspect]
     Dosage: 7 U, EACH EVENING
  4. HUMULIN 70/30 [Suspect]
     Indication: DIABETES MELLITUS
     Dosage: 12 U, EACH MORNING
     Dates: start: 19970101

REACTIONS (3)
  - DIABETIC FOOT [None]
  - BLINDNESS [None]
  - IMPAIRED HEALING [None]
